FAERS Safety Report 6874644-1 (Version None)
Quarter: 2010Q3

REPORT INFORMATION
  Report Type: 
  Country: None (occurrence: None)
  Receive Date: 20100722
  Receipt Date: 20100707
  Transmission Date: 20110219
  Serious: Yes (Other)
  Sender: FDA-Public Use
  Company Number: AMAG201000289

PATIENT
  Age: 80 Year
  Sex: Female
  Weight: 56 kg

DRUGS (17)
  1. FERAHEME [Suspect]
     Indication: IRON DEFICIENCY ANAEMIA
     Dosage: 510 MG, SINGLE, INTRAVENOUS
     Route: 042
     Dates: start: 20100707, end: 20100707
  2. FERAHEME [Suspect]
     Indication: RENAL FAILURE CHRONIC
     Dosage: 510 MG, SINGLE, INTRAVENOUS
     Route: 042
     Dates: start: 20100707, end: 20100707
  3. ALLOPURINOL [Concomitant]
  4. ARANESP [Concomitant]
  5. ASPIRIN [Concomitant]
  6. ATENOLOL [Concomitant]
  7. CALCITONIN (CALCITONIN, SALMON) [Concomitant]
  8. DOXAZOSIN (DOXAZOSIN MESILATE) [Concomitant]
  9. KLOR-CON [Concomitant]
  10. MIRALAX [Concomitant]
  11. STOOL SOFTENER (DOCUSATE SODIUM) [Concomitant]
  12. RENAGEL [Concomitant]
  13. SENSIPAR [Concomitant]
  14. SODIUM BICARBONATE IN PLASTIC CONTAINER [Concomitant]
  15. VITAMIN D [Concomitant]
  16. GENTAMICIN SULFATE [Concomitant]
  17. MULTIVITAMINS, COMBINATIONS [Concomitant]

REACTIONS (7)
  - EYE ROLLING [None]
  - FATIGUE [None]
  - FEELING ABNORMAL [None]
  - HEART RATE DECREASED [None]
  - HYPOTENSION [None]
  - LOSS OF CONSCIOUSNESS [None]
  - PULSE PRESSURE DECREASED [None]
